FAERS Safety Report 8654828 (Version 7)
Quarter: 2014Q2

REPORT INFORMATION
  Report Type: Spontaneous
  Country: CA (occurrence: CA)
  Receive Date: 20120709
  Receipt Date: 20140507
  Transmission Date: 20141212
  Serious: Yes (Hospitalization)
  Sender: FDA-Public Use
  Company Number: CA-GLAXOSMITHKLINE-A0982727A

PATIENT
  Age: 75 Year
  Sex: Female
  Weight: 102.3 kg

DRUGS (26)
  1. ADVAIR [Suspect]
     Indication: ASTHMA
     Dosage: 1PUFF TWICE PER DAY
     Route: 055
     Dates: start: 1999
  2. VENTOLIN [Suspect]
     Indication: PRODUCT USED FOR UNKNOWN INDICATION
     Route: 065
  3. PREDNISONE [Suspect]
     Indication: PRODUCT USED FOR UNKNOWN INDICATION
     Route: 065
  4. SINGULAIR [Concomitant]
     Dosage: 10MG UNKNOWN
     Route: 065
  5. QVAR [Concomitant]
     Indication: BRONCHITIS CHRONIC
     Route: 065
  6. ZYLOPRIM [Concomitant]
     Dosage: 200MG PER DAY
     Route: 065
  7. IRON [Concomitant]
     Dosage: 300MG TWICE PER DAY
     Route: 065
  8. LECTOPAM [Concomitant]
     Dosage: 4.5MG PER DAY
     Route: 065
  9. CALCIUM [Concomitant]
     Dosage: 500MG TWICE PER DAY
  10. VITAMIN B [Concomitant]
     Dosage: 400IU TWICE PER DAY
     Route: 065
  11. VERAPAMIL SR [Concomitant]
     Dosage: 240MG PER DAY
     Route: 065
  12. VENLAFAXINE [Concomitant]
     Dosage: 150MG PER DAY
     Route: 065
  13. DOCUSATE [Concomitant]
     Dosage: 2TAB AT NIGHT
     Route: 065
  14. DOMPERIDONE [Concomitant]
     Dosage: 10MG THREE TIMES PER DAY
     Route: 065
  15. TYLENOL [Concomitant]
     Dosage: 500MG TWICE PER DAY
     Route: 065
  16. ESOMEPRAZOLE [Concomitant]
     Dosage: 40MG PER DAY
     Route: 065
  17. WARFARIN [Concomitant]
     Route: 065
  18. GRAVOL [Concomitant]
  19. GASTROLYTE [Concomitant]
  20. AVAMYS [Concomitant]
  21. COUMADIN [Concomitant]
  22. CALCIUM WITH VITAMIN D [Concomitant]
  23. ISOPTIN SR [Concomitant]
  24. NEXIUM [Concomitant]
     Dosage: 40MG PER DAY
  25. TOPICAL PSORIASIS PREPARATIONS [Concomitant]
  26. VITAMIN D [Concomitant]
     Dosage: 400IU TWICE PER DAY

REACTIONS (47)
  - Arrhythmia supraventricular [Unknown]
  - Cardiac fibrillation [Unknown]
  - Fall [Recovered/Resolved]
  - Injury [Recovered/Resolved]
  - Cardiac disorder [Unknown]
  - Dacryostenosis acquired [Unknown]
  - Dry mouth [Unknown]
  - Salivary gland mass [Unknown]
  - Oropharyngeal pain [Unknown]
  - Cough [Recovered/Resolved]
  - Bronchitis [Unknown]
  - Surgery [Unknown]
  - Urinary tract infection [Unknown]
  - Vomiting [Unknown]
  - Salivary gland neoplasm [Not Recovered/Not Resolved]
  - Pyrexia [Unknown]
  - Anxiety [Unknown]
  - Aphonia [Unknown]
  - Muscular weakness [Unknown]
  - Tooth disorder [Unknown]
  - Dry throat [Unknown]
  - Local swelling [Not Recovered/Not Resolved]
  - Pain [Unknown]
  - Contusion [Recovering/Resolving]
  - Drug level decreased [Unknown]
  - Arthritis [Unknown]
  - Fatigue [Unknown]
  - Mass excision [Unknown]
  - Ear pain [Unknown]
  - Influenza [Unknown]
  - Headache [Unknown]
  - Eye pain [Unknown]
  - Plantar fasciitis [Unknown]
  - Walking aid user [Unknown]
  - Optic neuritis [Unknown]
  - Pain in jaw [Unknown]
  - Asthma [Unknown]
  - Dyspnoea [Unknown]
  - Drug ineffective [Unknown]
  - Asthenia [Unknown]
  - Throat irritation [Unknown]
  - Bronchitis [Unknown]
  - Dyspnoea exertional [Unknown]
  - Productive cough [Unknown]
  - Psoriasis [Unknown]
  - Adverse event [Unknown]
  - Feeling abnormal [Unknown]
